FAERS Safety Report 9636069 (Version 1)
Quarter: 2013Q4

REPORT INFORMATION
  Report Type: Spontaneous
  Country: ES (occurrence: ES)
  Receive Date: 20131021
  Receipt Date: 20131021
  Transmission Date: 20140711
  Serious: Yes (Other)
  Sender: FDA-Public Use
  Company Number: ES-VERTEX PHARMACEUTICALS INC-2013-010502

PATIENT
  Age: 56 Year
  Sex: Female

DRUGS (6)
  1. INCIVO [Suspect]
     Indication: CHRONIC HEPATITIS C
     Dosage: 1125 MG, BID
     Route: 048
     Dates: start: 201202, end: 201204
  2. RIBAVIRIN [Suspect]
     Indication: CHRONIC HEPATITIS C
     Dosage: DOSAGE FORM: UNSPECIFIED
     Route: 048
     Dates: start: 201202
  3. RIBAVIRIN [Suspect]
     Dosage: DOSAGE FORM: UNSPECIFIED, 400 MG AT BREAKFAST AND 200 MG AT DINNER
     Route: 048
     Dates: start: 201204, end: 201205
  4. RIBAVIRIN [Suspect]
     Dosage: DOSAGE FORM: UNSPECIFIED, 600 MG IN THE MORNING AND 400 MG IN THE EVENING
     Route: 048
     Dates: start: 20120710
  5. PEG INTERFERON [Suspect]
     Indication: CHRONIC HEPATITIS C
     Dosage: DOSAGE FORM: UNSPECIFIED
     Route: 058
     Dates: start: 201202
  6. PEG INTERFERON [Suspect]
     Dosage: DOSAGE FORM: UNSPECIFIED
     Route: 058
     Dates: start: 201204

REACTIONS (20)
  - Pyrexia [Recovered/Resolved]
  - Depression [Recovered/Resolved]
  - Asthenia [Not Recovered/Not Resolved]
  - Dizziness [Recovered/Resolved]
  - Neutropenia [Recovered/Resolved]
  - Musculoskeletal pain [Recovered/Resolved]
  - Leukopenia [Recovered/Resolved]
  - Renal failure [Recovered/Resolved]
  - Decreased appetite [Recovered/Resolved]
  - Thrombocytopenia [Recovered/Resolved]
  - Anaemia [Recovered/Resolved]
  - Oedema peripheral [Recovered/Resolved]
  - Hyperuricaemia [Recovered/Resolved]
  - Face oedema [Recovered/Resolved]
  - Irritability [Recovered/Resolved]
  - Headache [Recovered/Resolved]
  - Gingival bleeding [Recovered/Resolved]
  - Injection site bruising [Recovered/Resolved]
  - Alopecia [Recovered/Resolved]
  - Pruritus generalised [Recovered/Resolved]
